FAERS Safety Report 8984599 (Version 1)
Quarter: 2012Q4

REPORT INFORMATION
  Report Type: 
  Country: BR (occurrence: BR)
  Receive Date: 20121225
  Receipt Date: 20121225
  Transmission Date: 20130627
  Serious: Yes (Hospitalization)
  Sender: FDA-Public Use
  Company Number: BR-SANOFI-AVENTIS-2012SA092047

PATIENT
  Age: 36 Year
  Sex: Female

DRUGS (2)
  1. CLEXANE [Suspect]
     Indication: THROMBOSIS
     Dosage: strength: 20 mg; 2 inj on each arm
     Route: 065
     Dates: start: 20121206
  2. PROFENID [Interacting]
     Indication: PAIN
     Dosage: strength: 100 mg
     Route: 065
     Dates: start: 20121206

REACTIONS (15)
  - Blood pressure increased [Recovered/Resolved]
  - Cerebrovascular accident [Unknown]
  - VIIth nerve paralysis [Unknown]
  - Formication [Unknown]
  - Blood pressure increased [Recovered/Resolved]
  - Dyspnoea [Unknown]
  - Vision blurred [Unknown]
  - Drug interaction [Unknown]
  - Chest pain [Unknown]
  - Dyspnoea [Unknown]
  - Thrombosis [Unknown]
  - Gastroenteritis [Unknown]
  - Haematemesis [Unknown]
  - Duodenitis [Unknown]
  - Injection site discolouration [Unknown]
